FAERS Safety Report 8793121 (Version 4)
Quarter: 2013Q1

REPORT INFORMATION
  Report Type: Spontaneous
  Country: US (occurrence: US)
  Receive Date: 20120918
  Receipt Date: 20130326
  Transmission Date: 20140127
  Serious: No
  Sender: FDA-Public Use
  Company Number: US-ASTRAZENECA-2012SE71684

PATIENT
  Age: 64 Year
  Sex: Female
  Weight: 74.8 kg

DRUGS (7)
  1. ATENOLOL [Suspect]
     Indication: BLOOD PRESSURE
     Route: 048
  2. SEROQUEL [Suspect]
     Indication: SLEEP DISORDER
     Route: 048
  3. SEROQUEL [Suspect]
     Indication: SLEEP DISORDER
     Dosage: GENERIC
     Route: 048
     Dates: start: 201209, end: 201209
  4. SUMATRIPTIN [Concomitant]
     Dosage: AS NEEDED
  5. XANAX [Concomitant]
     Dosage: AS NEEDED
  6. SERTRALINE [Concomitant]
  7. PERCOCET [Concomitant]
     Dosage: AS NEEDED

REACTIONS (8)
  - Adverse drug reaction [Unknown]
  - Chest discomfort [Unknown]
  - Abnormal sensation in eye [Unknown]
  - Sedation [Unknown]
  - Heart rate increased [Unknown]
  - Somnolence [Unknown]
  - Off label use [Unknown]
  - Drug ineffective [Unknown]
